FAERS Safety Report 9888650 (Version 3)
Quarter: 2014Q1

REPORT INFORMATION
  Report Type: Spontaneous
  Country: US (occurrence: US)
  Receive Date: 20140211
  Receipt Date: 20140325
  Transmission Date: 20141002
  Serious: Yes (Hospitalization)
  Sender: FDA-Public Use
  Company Number: US-JNJFOC-20140203564

PATIENT
  Age: 73 Year
  Sex: Female

DRUGS (15)
  1. INFLIXIMAB, RECOMBINANT [Suspect]
     Indication: CROHN^S DISEASE
     Route: 042
     Dates: start: 20050311, end: 20100921
  2. BONIVA [Concomitant]
     Route: 042
  3. CALCIUM CARBONATE AND VITAMIN D [Concomitant]
     Dosage: 500-200 MG: 1 TABLET TWICE A DAY
     Route: 048
  4. CHOLECALCIFEROL [Concomitant]
     Route: 048
  5. QUESTRAN [Concomitant]
     Dosage: 4 GM PACKET: 1 PACKET TWICE A DAY,ONCE IN THE AM PRIOR FOOD AND ONCE PRIOR TO BED
     Route: 048
  6. CODEINE [Concomitant]
     Route: 048
  7. VITAMIN D [Concomitant]
     Route: 048
  8. ETHYL ALCOHOL [Concomitant]
     Dosage: 50%-3 ML: FLUSHES EVERY MONDAYS
     Route: 065
  9. LEVOXYL [Concomitant]
     Route: 048
  10. AVELOX [Concomitant]
     Dosage: TAKE FIRST 10 DAYS OF EACH ODD MONTH
     Route: 048
  11. ELECTROLYTE SOLUTIONS [Concomitant]
     Route: 042
  12. TYLENOL [Concomitant]
     Indication: PAIN
     Dosage: 1-2 TABLETS EVERY 4 HOURS AS NEEDED
     Route: 065
  13. MULTIVITAMINS [Concomitant]
     Route: 065
  14. VITAMIN K [Concomitant]
     Dosage: ONCE ON SATURDAYS 10 HOUR CYCLE
     Route: 065
  15. ACTIGALL [Concomitant]
     Route: 048

REACTIONS (1)
  - Acute pulmonary histoplasmosis [Recovering/Resolving]
